FAERS Safety Report 17929101 (Version 1)
Quarter: 2020Q2

REPORT INFORMATION
  Report Type: Spontaneous
  Country: JP (occurrence: JP)
  Receive Date: 20200623
  Receipt Date: 20200623
  Transmission Date: 20200714
  Serious: Yes (Hospitalization)
  Sender: FDA-Public Use
  Company Number: JP-ELI_LILLY_AND_COMPANY-JP202006007521

PATIENT
  Age: 43 Year
  Sex: Female
  Weight: 49 kg

DRUGS (25)
  1. ASPARA POTASSIUM [Concomitant]
     Active Substance: POTASSIUM ASPARTATE
     Indication: HYPOKALAEMIA
  2. LOXOPROFEN [Concomitant]
     Active Substance: LOXOPROFEN
     Indication: PRODUCT USED FOR UNKNOWN INDICATION
  3. LANSOPRAZOLE. [Concomitant]
     Active Substance: LANSOPRAZOLE
     Indication: PRODUCT USED FOR UNKNOWN INDICATION
  4. ACETAMINOPHEN. [Concomitant]
     Active Substance: ACETAMINOPHEN
     Indication: PRODUCT USED FOR UNKNOWN INDICATION
  5. ADCIRCA [Suspect]
     Active Substance: TADALAFIL
     Indication: PULMONARY ARTERIAL HYPERTENSION
     Dosage: 40 MG, UNKNOWN
     Route: 065
  6. UPTRAVI [Suspect]
     Active Substance: SELEXIPAG
     Dosage: 1.6 UNK
     Route: 048
     Dates: start: 20180905, end: 201809
  7. MIYABM [Concomitant]
     Indication: PRODUCT USED FOR UNKNOWN INDICATION
  8. REBAMIPIDE [Concomitant]
     Active Substance: REBAMIPIDE
     Indication: PRODUCT USED FOR UNKNOWN INDICATION
  9. UPTRAVI [Suspect]
     Active Substance: SELEXIPAG
     Dosage: 1.6 UNK
     Route: 048
     Dates: start: 20181214
  10. OPSUMIT [Concomitant]
     Active Substance: MACITENTAN
     Indication: PULMONARY ARTERIAL HYPERTENSION
  11. ESOMEPRAZOLUM [Concomitant]
     Indication: PRODUCT USED FOR UNKNOWN INDICATION
  12. LAC B [Concomitant]
     Active Substance: BIFIDOBACTERIUM SPP.
     Indication: CONSTIPATION
  13. UPTRAVI [Suspect]
     Active Substance: SELEXIPAG
     Dosage: 0.8 UNK
     Route: 048
     Dates: start: 20180205, end: 20180326
  14. UPTRAVI [Suspect]
     Active Substance: SELEXIPAG
     Dosage: UNK
     Route: 048
     Dates: start: 20180614, end: 20180904
  15. UPTRAVI [Suspect]
     Active Substance: SELEXIPAG
     Dosage: 1.4 UNK
     Route: 048
     Dates: start: 201809, end: 20181213
  16. FUROSEMIDE. [Concomitant]
     Active Substance: FUROSEMIDE
     Indication: CARDIAC FAILURE
  17. SPIRONOLACTONE. [Concomitant]
     Active Substance: SPIRONOLACTONE
     Indication: CARDIAC FAILURE
  18. CELECOX [Concomitant]
     Active Substance: CELECOXIB
     Indication: ARTHRALGIA
  19. UPTRAVI [Suspect]
     Active Substance: SELEXIPAG
     Dosage: 1 UNK
     Route: 048
     Dates: start: 20180327, end: 20180424
  20. UPTRAVI [Suspect]
     Active Substance: SELEXIPAG
     Dosage: 1.2 UNK
     Route: 048
     Dates: start: 20180425, end: 20180613
  21. UPTRAVI [Suspect]
     Active Substance: SELEXIPAG
     Dosage: UNK
     Route: 065
     Dates: end: 20200127
  22. FERROUS CITRATE [Concomitant]
     Active Substance: FERROUS CITRATE
     Indication: IRON DEFICIENCY
  23. UPTRAVI [Suspect]
     Active Substance: SELEXIPAG
     Indication: PULMONARY ARTERIAL HYPERTENSION
     Dosage: 0.4 MG, UNKNOWN
     Route: 048
     Dates: start: 20180131, end: 20180204
  24. CALONAL [Concomitant]
     Active Substance: ACETAMINOPHEN
     Indication: ARTHRALGIA
  25. CEFCAPENE [Concomitant]
     Active Substance: CEFCAPENE
     Indication: PRODUCT USED FOR UNKNOWN INDICATION

REACTIONS (12)
  - Headache [Recovered/Resolved]
  - Chest pain [Recovering/Resolving]
  - Iron deficiency anaemia [Recovering/Resolving]
  - Dental caries [Recovered/Resolved]
  - Arrhythmia [Not Recovered/Not Resolved]
  - Diarrhoea [Recovered/Resolved]
  - Arthralgia [Recovering/Resolving]
  - Headache [Recovering/Resolving]
  - Hyperthyroidism [Recovered/Resolved]
  - Sciatica [Recovering/Resolving]
  - Hypotension [Recovered/Resolved]
  - Hypotension [Recovered/Resolved]

NARRATIVE: CASE EVENT DATE: 20180307
